FAERS Safety Report 7329557-8 (Version None)
Quarter: 2011Q1

REPORT INFORMATION
  Report Type: 
  Country: None (occurrence: None)
  Receive Date: 20110303
  Receipt Date: 20110301
  Transmission Date: 20110831
  Serious: Yes (Life-Threatening, Other)
  Sender: FDA-Public Use
  Company Number: US-B.I. PHARMACEUTICALS,INC./RIDGEFIELD-2011-BP-05752BP

PATIENT
  Age: 64 Year
  Sex: Male

DRUGS (2)
  1. CATAPRES-TTS-1 [Suspect]
     Indication: HYPERTENSION
     Dosage: 0.1 MG
     Route: 061
     Dates: start: 20010101, end: 20101201
  2. CATAPRES-TTS-1 [Suspect]
     Dosage: 0.2 MG
     Route: 061
     Dates: start: 20010101, end: 20101201

REACTIONS (1)
  - MYOCARDIAL INFARCTION [None]
